FAERS Safety Report 8296446-4 (Version None)
Quarter: 2012Q2

REPORT INFORMATION
  Report Type: 
  Country: None (occurrence: None)
  Receive Date: 20120418
  Receipt Date: 20120416
  Transmission Date: 20120825
  Serious: Yes (Other)
  Sender: FDA-Public Use
  Company Number: US-ABBOTT-12P-163-0926160-00

PATIENT
  Sex: Female
  Weight: 51.302 kg

DRUGS (6)
  1. TEA [Concomitant]
     Indication: PRODUCT USED FOR UNKNOWN INDICATION
     Dosage: 1 SERVING DAILY
     Route: 048
     Dates: start: 20120215
  2. ASCORBIC ACID [Concomitant]
     Indication: PRODUCT USED FOR UNKNOWN INDICATION
     Dosage: 1 PILL WEEKLY
     Route: 048
     Dates: start: 20120215, end: 20120409
  3. ALKA SELTZER PLUS COLD + COUGH FORMULA [Concomitant]
     Indication: NASOPHARYNGITIS
     Dosage: 1.5 PILL DAILY
     Route: 048
     Dates: start: 20120226, end: 20120301
  4. WINE [Concomitant]
     Indication: PRODUCT USED FOR UNKNOWN INDICATION
     Dosage: 1 SERVING TOTAL
     Route: 048
     Dates: start: 20120301, end: 20120330
  5. CONDOM NOS [Concomitant]
     Indication: PRODUCT USED FOR UNKNOWN INDICATION
     Dates: start: 20120215, end: 20120404
  6. HUMIRA [Suspect]
     Indication: RHEUMATOID ARTHRITIS
     Dates: start: 20120215

REACTIONS (1)
  - ABORTION SPONTANEOUS [None]
